FAERS Safety Report 4385676-X (Version None)
Quarter: 2004Q2

REPORT INFORMATION
  Report Type: 
  Country: None (occurrence: None)
  Receive Date: 20040625
  Receipt Date: 20040625
  Transmission Date: 20050107
  Serious: Yes (Life-Threatening, Hospitalization)
  Sender: FDA-Public Use
  Company Number: None

PATIENT

DRUGS (7)
  1. COMTAN [Suspect]
     Indication: PARKINSON'S DISEASE
     Dates: start: 20040427
  2. ADVAIR DISKUS 100/50 [Concomitant]
  3. TYLENOL [Concomitant]
  4. COUMADIN [Concomitant]
  5. VIOXX [Concomitant]
  6. SINEMET [Concomitant]
  7. XANAX [Concomitant]

REACTIONS (5)
  - AGRANULOCYTOSIS [None]
  - ANAEMIA [None]
  - LYMPHOCYTE COUNT DECREASED [None]
  - NEUTROPHIL COUNT DECREASED [None]
  - PLATELET COUNT DECREASED [None]
